FAERS Safety Report 9054678 (Version 2)
Quarter: 2013Q1

REPORT INFORMATION
  Report Type: Spontaneous
  Country: DE (occurrence: DE)
  Receive Date: 20130208
  Receipt Date: 20130307
  Transmission Date: 20140127
  Serious: Yes (Hospitalization)
  Sender: FDA-Public Use
  Company Number: DE-JNJFOC-20130200003

PATIENT
  Age: 12 Year
  Sex: Female
  Weight: 32.8 kg

DRUGS (7)
  1. REMICADE [Suspect]
     Indication: SARCOIDOSIS
     Dosage: 11TH INFUSION
     Route: 042
     Dates: start: 20130124
  2. REMICADE [Suspect]
     Indication: SARCOIDOSIS
     Route: 042
     Dates: start: 201204
  3. MEDIKINET [Concomitant]
     Route: 065
  4. MEDIKINET [Concomitant]
     Route: 065
  5. VITAMIN D [Concomitant]
     Route: 065
  6. VITAMIN B12 [Concomitant]
     Route: 065
  7. IRON [Concomitant]
     Route: 065

REACTIONS (6)
  - Thrombocytopenia [Unknown]
  - Drug specific antibody present [Unknown]
  - Off label use [Unknown]
  - Infusion related reaction [Recovered/Resolved]
  - Anaphylactic reaction [Recovered/Resolved]
  - Leukopenia [Unknown]
